FAERS Safety Report 5393326-9 (Version None)
Quarter: 2007Q3

REPORT INFORMATION
  Report Type: 
  Country: None (occurrence: None)
  Receive Date: 20070723
  Receipt Date: 20070712
  Transmission Date: 20080115
  Serious: Yes (Hospitalization)
  Sender: FDA-Public Use
  Company Number: US-JNJFOC-20070600367

PATIENT
  Sex: Male
  Weight: 81.65 kg

DRUGS (2)
  1. FENTANYL TRANSDERMAL SYSTEM [Suspect]
     Indication: BACK PAIN
     Route: 062
  2. PERCOCET [Concomitant]
     Indication: BREAKTHROUGH PAIN
     Dosage: 75-325 MG
     Route: 048

REACTIONS (4)
  - BENIGN TUMOUR EXCISION [None]
  - BREAKTHROUGH PAIN [None]
  - ROTATOR CUFF SYNDROME [None]
  - WRONG TECHNIQUE IN DRUG USAGE PROCESS [None]
